FAERS Safety Report 7670771-X (Version None)
Quarter: 2011Q3

REPORT INFORMATION
  Report Type: 
  Country: None (occurrence: None)
  Receive Date: 20110809
  Receipt Date: 20110731
  Transmission Date: 20111222
  Serious: Yes (Hospitalization, Other)
  Sender: FDA-Public Use
  Company Number: US-SHIRE-ALL1-2011-02534

PATIENT
  Age: 2 Year
  Sex: Male

DRUGS (1)
  1. VYVANSE [Suspect]
     Indication: PRODUCT USED FOR UNKNOWN INDICATION
     Dosage: 450 MG (15, 30 MG CAPSULES), UNKNOWN
     Route: 048
     Dates: start: 20110314, end: 20110314

REACTIONS (9)
  - ACCIDENTAL OVERDOSE [None]
  - URINE OUTPUT DECREASED [None]
  - AGITATION [None]
  - VOMITING [None]
  - DECREASED APPETITE [None]
  - ABNORMAL BEHAVIOUR [None]
  - HALLUCINATION, VISUAL [None]
  - INSOMNIA [None]
  - THIRST DECREASED [None]
